FAERS Safety Report 6259033-5 (Version None)
Quarter: 2009Q3

REPORT INFORMATION
  Report Type: 
  Country: None (occurrence: None)
  Receive Date: 20090707
  Receipt Date: 20090629
  Transmission Date: 20100115
  Serious: Yes (Hospitalization, Other)
  Sender: FDA-Public Use
  Company Number: PHEH2009US06904

PATIENT
  Sex: Male

DRUGS (1)
  1. RITALIN LA [Suspect]
     Dosage: 20 MG, UNK

REACTIONS (4)
  - ASTHMA [None]
  - DEPRESSION [None]
  - NEPHROLITHIASIS [None]
  - RHEUMATOID ARTHRITIS [None]
